FAERS Safety Report 8502182-9 (Version None)
Quarter: 2012Q2

REPORT INFORMATION
  Report Type: 
  Country: None (occurrence: None)
  Receive Date: 20120629
  Receipt Date: 20120618
  Transmission Date: 20120825
  Serious: Yes (Disabling, Other)
  Sender: FDA-Public Use
  Company Number: 2012P1042832

PATIENT
  Sex: Male

DRUGS (1)
  1. REGLAN [Suspect]

REACTIONS (9)
  - ANHEDONIA [None]
  - NERVOUS SYSTEM DISORDER [None]
  - EXTRAPYRAMIDAL DISORDER [None]
  - ANXIETY [None]
  - ACTIVITIES OF DAILY LIVING IMPAIRED [None]
  - PAIN [None]
  - OVERDOSE [None]
  - TARDIVE DYSKINESIA [None]
  - INJURY [None]
